FAERS Safety Report 24170668 (Version 1)
Quarter: 2024Q3

REPORT INFORMATION
  Report Type: Spontaneous
  Country: US (occurrence: None)
  Receive Date: 20240802
  Receipt Date: 20240802
  Transmission Date: 20241016
  Serious: Yes (Life-Threatening, Hospitalization)
  Sender: Public
  Company Number: None

PATIENT
  Age: 61 Year
  Sex: Female
  Weight: 80.55 kg

DRUGS (11)
  1. CIMZIA [Suspect]
     Active Substance: CERTOLIZUMAB PEGOL
     Indication: Rheumatoid arthritis
     Dosage: OTHER QUANTITY : 1 INJECTION(S);?OTHER FREQUENCY : GIVEN OVER 3 MONTH;?
     Route: 042
  2. BUPROPION [Concomitant]
     Active Substance: BUPROPION
  3. BUSPIRONE [Concomitant]
     Active Substance: BUSPIRONE HYDROCHLORIDE
  4. LEFLUNOMIDE [Concomitant]
     Active Substance: LEFLUNOMIDE
  5. NIFEDIPINE [Concomitant]
     Active Substance: NIFEDIPINE
  6. PREGABALIN [Concomitant]
     Active Substance: PREGABALIN
  7. SPIRONOLACTONE [Concomitant]
     Active Substance: SPIRONOLACTONE
  8. TEMAZEPAM [Concomitant]
     Active Substance: TEMAZEPAM
  9. TIZANIDINE [Concomitant]
     Active Substance: TIZANIDINE
  10. CEPHALEXIN [Concomitant]
     Active Substance: CEPHALEXIN
  11. TYLENOL [Concomitant]
     Active Substance: ACETAMINOPHEN

REACTIONS (6)
  - Urinary tract infection [None]
  - Nausea [None]
  - Rheumatoid arthritis [None]
  - Paraesthesia [None]
  - Fall [None]
  - Renal disorder [None]

NARRATIVE: CASE EVENT DATE: 20240528
